FAERS Safety Report 4868122-9 (Version None)
Quarter: 2005Q4

REPORT INFORMATION
  Report Type: 
  Country: None (occurrence: None)
  Receive Date: 20051227
  Receipt Date: 20051227
  Transmission Date: 20060501
  Serious: Yes (Hospitalization)
  Sender: FDA-Public Use
  Company Number: None

PATIENT
  Sex: Female
  Weight: 73 kg

DRUGS (11)
  1. PACLITAXEL [Suspect]
     Indication: TRANSITIONAL CELL CARCINOMA
     Dosage: SEE IMAGE
     Route: 042
     Dates: start: 20051205
  2. CARBOPLATIN [Suspect]
     Dosage: SEE IMAGE
     Route: 042
     Dates: start: 20051205
  3. BEVACIZUMAB [Suspect]
     Dosage: SEE IMAGE
     Route: 042
  4. PLACEBO [Suspect]
     Dosage: SEE IMAGE
     Route: 042
  5. AVINZA [Concomitant]
  6. CLONAZEPAM [Concomitant]
  7. DEPAKOTE [Concomitant]
  8. EFFEXOR [Concomitant]
  9. HYDROXYZINE [Concomitant]
  10. TRAASDONE [Concomitant]
  11. ZANAFLEX [Concomitant]

REACTIONS (2)
  - MANIA [None]
  - PSYCHOTIC DISORDER [None]
